FAERS Safety Report 5691278-5 (Version None)
Quarter: 2008Q1

REPORT INFORMATION
  Report Type: 
  Country: None (occurrence: None)
  Receive Date: 20080331
  Receipt Date: 20080317
  Transmission Date: 20080703
  Serious: Yes (Other)
  Sender: FDA-Public Use
  Company Number: 2008BI007246

PATIENT
  Sex: Female

DRUGS (1)
  1. AVONEX [Suspect]
     Indication: MULTIPLE SCLEROSIS
     Dosage: IM
     Route: 030
     Dates: start: 19990101, end: 20070101

REACTIONS (4)
  - ABASIA [None]
  - DEEP VEIN THROMBOSIS [None]
  - MEMORY IMPAIRMENT [None]
  - WEIGHT BEARING DIFFICULTY [None]
